FAERS Safety Report 9818294 (Version 1)
Quarter: 2014Q1

REPORT INFORMATION
  Report Type: Spontaneous
  Country: DK (occurrence: GB)
  Receive Date: 20140115
  Receipt Date: 20140115
  Transmission Date: 20141002
  Serious: Yes (Life-Threatening, Other)
  Sender: FDA-Public Use
  Company Number: GB-FRI-1000052810

PATIENT
  Sex: Male

DRUGS (3)
  1. ESCITALOPRAM [Suspect]
     Dosage: 30 MG
     Route: 048
     Dates: start: 2003, end: 2011
  2. PRIADEL [Suspect]
     Dosage: 1000 MG
     Dates: start: 2003, end: 2011
  3. ZYPREXA [Suspect]
     Dosage: 15 MG
     Dates: start: 2003, end: 2011

REACTIONS (1)
  - General physical health deterioration [Unknown]
